FAERS Safety Report 7406866-5 (Version None)
Quarter: 2011Q2

REPORT INFORMATION
  Report Type: 
  Country: None (occurrence: None)
  Receive Date: 20110411
  Receipt Date: 20110120
  Transmission Date: 20111010
  Serious: No
  Sender: FDA-Public Use
  Company Number: US-BAUSCH-2011BL000508

PATIENT
  Age: 49 Year
  Sex: Male

DRUGS (2)
  1. ZIRGAN [Suspect]
     Indication: EYE INFECTION VIRAL
     Route: 047
     Dates: start: 20101115, end: 20110103
  2. LAMICTAL [Concomitant]
     Indication: PRODUCT USED FOR UNKNOWN INDICATION
     Route: 048

REACTIONS (2)
  - VISION BLURRED [None]
  - VISUAL ACUITY REDUCED [None]
